FAERS Safety Report 7221834-4 (Version None)
Quarter: 2011Q1

REPORT INFORMATION
  Report Type: 
  Country: None (occurrence: None)
  Receive Date: 20110112
  Receipt Date: 20110104
  Transmission Date: 20110831
  Serious: Yes (Other)
  Sender: FDA-Public Use
  Company Number: A0902192A

PATIENT
  Sex: Female
  Weight: 97.6 kg

DRUGS (3)
  1. XELODA [Concomitant]
     Dosage: 2000MG TWICE PER DAY
     Route: 048
     Dates: start: 20100315
  2. CLODRONATE [Concomitant]
     Route: 065
  3. TYKERB [Suspect]
     Dosage: 1250MG PER DAY
     Route: 048
     Dates: start: 20100315

REACTIONS (6)
  - ALANINE AMINOTRANSFERASE INCREASED [None]
  - BLOOD LACTATE DEHYDROGENASE INCREASED [None]
  - BLOOD ALKALINE PHOSPHATASE INCREASED [None]
  - LIVER FUNCTION TEST ABNORMAL [None]
  - JAUNDICE [None]
  - BLOOD BILIRUBIN INCREASED [None]
